FAERS Safety Report 4802750-1 (Version None)
Quarter: 2005Q4

REPORT INFORMATION
  Report Type: 
  Country: None (occurrence: None)
  Receive Date: 20051017
  Receipt Date: 20051017
  Transmission Date: 20060501
  Serious: Yes (Hospitalization)
  Sender: FDA-Public Use
  Company Number: None

PATIENT
  Age: 64 Year
  Sex: Female
  Weight: 128.8216 kg

DRUGS (19)
  1. EPTIFIBATIDE [Suspect]
     Dosage: 180MCG/KG BOLUS, 2MCG/KG/MIN IV
     Route: 042
     Dates: start: 20050723, end: 20050723
  2. HEPARIN [Suspect]
     Dosage: 9600 UNIT BOLUS, 12UNIT/KG/HR
     Dates: start: 20050723, end: 20050723
  3. ACETAMINOPHEN [Concomitant]
  4. ALLOPURINOL [Concomitant]
  5. ASPIRIN [Concomitant]
  6. CLOPIDOGREL BISULFATE [Concomitant]
  7. FOSINOPRIL SODIUM [Concomitant]
  8. GEMFIBROZIL [Concomitant]
  9. TRIGLYCERIDES [Concomitant]
  10. HEPARIN [Concomitant]
  11. HEPARIN/SODIUM CHLORIDE [Concomitant]
  12. INSULIN ASPART -HUMAN- [Concomitant]
  13. METOPROLOL [Concomitant]
  14. MORPHINE [Concomitant]
  15. MYLANTA/BENADRYL/XYLOCAINE [Concomitant]
  16. NITROGLYCERIN [Concomitant]
  17. OMEPRAZOLE [Concomitant]
  18. SIMETHICONE [Concomitant]
  19. SIMVASTATIN [Concomitant]

REACTIONS (1)
  - THROMBOCYTOPENIA [None]
